FAERS Safety Report 4265033-7 (Version None)
Quarter: 2004Q1

REPORT INFORMATION
  Report Type: 
  Country: None (occurrence: None)
  Receive Date: 20040105
  Receipt Date: 20031222
  Transmission Date: 20041129
  Serious: No
  Sender: FDA-Public Use
  Company Number: 03P-062-0245599-00

PATIENT
  Age: 35 Year
  Sex: Female

DRUGS (3)
  1. DEPAKENE [Suspect]
     Indication: EPILEPSY
     Dosage: 500 MG, 2 IN 1 D, PER ORAL
     Route: 048
     Dates: start: 20031001
  2. MINOCYCLINE HCL [Suspect]
     Indication: DERMATITIS
     Dosage: 50 MG, 2 IN 1 D, PER ORAL
     Route: 048
     Dates: start: 20031007, end: 20031014
  3. PIMECROLIMUS [Concomitant]

REACTIONS (3)
  - DERMATITIS [None]
  - DRUG INTERACTION [None]
  - SIMPLE PARTIAL SEIZURES [None]
